FAERS Safety Report 23619417 (Version 1)
Quarter: 2024Q1

REPORT INFORMATION
  Report Type: Spontaneous
  Country: US (occurrence: US)
  Receive Date: 20240311
  Receipt Date: 20240311
  Transmission Date: 20240409
  Serious: No
  Sender: FDA-Public Use
  Company Number: US-JNJFOC-20240301243

PATIENT
  Sex: Female

DRUGS (1)
  1. TECLISTAMAB [Suspect]
     Active Substance: TECLISTAMAB
     Indication: Product used for unknown indication
     Route: 065

REACTIONS (2)
  - Infection [Unknown]
  - Hypoglycaemia [Unknown]
